FAERS Safety Report 7787841-8 (Version None)
Quarter: 2011Q3

REPORT INFORMATION
  Report Type: 
  Country: None (occurrence: None)
  Receive Date: 20110930
  Receipt Date: 20110926
  Transmission Date: 20111222
  Serious: Yes (Hospitalization)
  Sender: FDA-Public Use
  Company Number: US-BIOGENIDEC-2011BI036793

PATIENT
  Age: 51 Year
  Sex: Male

DRUGS (3)
  1. AVONEX [Suspect]
     Indication: MULTIPLE SCLEROSIS
     Route: 030
     Dates: start: 20080704
  2. AVONEX [Suspect]
     Route: 030
     Dates: start: 19960501, end: 20070202
  3. AVONEX [Suspect]
     Route: 030
     Dates: start: 20070502, end: 20071101

REACTIONS (2)
  - PNEUMONIA [None]
  - DIPLEGIA [None]
